FAERS Safety Report 6183832-1 (Version None)
Quarter: 2009Q2

REPORT INFORMATION
  Report Type: 
  Country: None (occurrence: None)
  Receive Date: 20090508
  Receipt Date: 20090429
  Transmission Date: 20091009
  Serious: Yes (Hospitalization)
  Sender: FDA-Public Use
  Company Number: US-ROCHE-614317

PATIENT
  Sex: Female

DRUGS (6)
  1. PEG-INTERFERON A-2A (RO 25-8310) [Suspect]
     Indication: HEPATITIS C
     Route: 058
     Dates: start: 20081201, end: 20090119
  2. RIBAVIRIN [Suspect]
     Indication: HEPATITIS C
     Route: 065
     Dates: start: 20081201, end: 20090119
  3. DEPAKOTE [Concomitant]
  4. ABILIFY [Concomitant]
  5. ALPRAZOLAM [Concomitant]
  6. CITALOPRAM HYDROBROMIDE [Concomitant]

REACTIONS (2)
  - PANCREATITIS [None]
  - PANCREATOLITHIASIS [None]
